FAERS Safety Report 9358948 (Version 5)
Quarter: 2013Q3

REPORT INFORMATION
  Report Type: Spontaneous
  Country: JP (occurrence: JP)
  Receive Date: 20130620
  Receipt Date: 20130723
  Transmission Date: 20140515
  Serious: Yes (Life-Threatening, Hospitalization)
  Sender: FDA-Public Use
  Company Number: JP-PFIZER INC-2013181258

PATIENT
  Age: 20 Month
  Sex: Male
  Weight: 10 kg

DRUGS (6)
  1. ZITHROMAC [Suspect]
     Indication: BRONCHITIS
     Dosage: 100 MG, 1X/DAY
     Route: 048
     Dates: start: 20130611, end: 20130612
  2. PERIACTIN [Concomitant]
     Indication: BRONCHITIS
     Dosage: UNK
     Route: 048
     Dates: start: 20130611, end: 20130612
  3. HUSCODE [Concomitant]
     Indication: BRONCHITIS
     Dosage: UNK
     Route: 048
     Dates: start: 20130611, end: 20130612
  4. CARBOCISTEINE [Concomitant]
     Indication: BRONCHITIS
     Dosage: UNK
     Route: 048
     Dates: start: 20130611, end: 20130612
  5. HOKUNALIN [Concomitant]
     Indication: BRONCHITIS
     Dosage: 0.5 MG, 1X/DAY
     Route: 062
     Dates: start: 20130611, end: 20130612
  6. ANHIBA [Concomitant]
     Indication: BRONCHITIS
     Dosage: UNK
     Route: 054
     Dates: start: 20130611, end: 20130612

REACTIONS (1)
  - Rhabdomyolysis [Recovering/Resolving]
